FAERS Safety Report 11472824 (Version 1)
Quarter: 2015Q3

REPORT INFORMATION
  Report Type: Spontaneous
  Country: FR (occurrence: FR)
  Receive Date: 20150908
  Receipt Date: 20150908
  Transmission Date: 20151125
  Serious: Yes (Hospitalization, Other)
  Sender: FDA-Public Use
  Company Number: FR-ASTRAZENECA-2015SE86138

PATIENT
  Age: 413 Month
  Sex: Female

DRUGS (4)
  1. MIANSERINE [Concomitant]
     Active Substance: MIANSERIN HYDROCHLORIDE
  2. XEROQUEL [Suspect]
     Active Substance: QUETIAPINE FUMARATE
     Indication: BIPOLAR DISORDER
     Dosage: DOSE PROGRESSIVELY INCREASED TO REACH 300 MG PER DAY
     Route: 048
     Dates: start: 20120907, end: 201309
  3. XEROQUEL [Suspect]
     Active Substance: QUETIAPINE FUMARATE
     Indication: BIPOLAR DISORDER
     Route: 048
     Dates: start: 201309
  4. LYSANXIA [Concomitant]
     Active Substance: PRAZEPAM

REACTIONS (5)
  - Mastitis [Recovered/Resolved]
  - Pericarditis [Recovered/Resolved]
  - Immune system disorder [Unknown]
  - Oedema peripheral [Unknown]
  - Off label use [Not Recovered/Not Resolved]

NARRATIVE: CASE EVENT DATE: 201303
